FAERS Safety Report 6387856-0 (Version None)
Quarter: 2009Q3

REPORT INFORMATION
  Report Type: 
  Country: None (occurrence: None)
  Receive Date: 20090930
  Receipt Date: 20090914
  Transmission Date: 20100115
  Serious: Yes (Death)
  Sender: FDA-Public Use
  Company Number: 2009AL003824

PATIENT
  Age: 89 Year
  Sex: Female

DRUGS (17)
  1. DIGOXIN [Suspect]
     Indication: CARDIAC DISORDER
     Dosage: 0.125MG, DAILY, PO
     Route: 048
     Dates: start: 20070201, end: 20080425
  2. DIGOXIN [Suspect]
     Dosage: 0.125MG, QOD, PO
     Route: 048
     Dates: start: 20080727
  3. METOPROLOL [Concomitant]
  4. CISINOPRIL [Concomitant]
  5. ASPIRIN [Concomitant]
  6. DILTIAZEM [Concomitant]
  7. LASIX [Concomitant]
  8. WARFARIN SODIUM [Concomitant]
  9. SIMVASTATIN [Concomitant]
  10. OXYBUTYNIN [Concomitant]
  11. NEXIUM [Concomitant]
  12. VESICARE [Concomitant]
  13. ENABLEX [Concomitant]
  14. LEVOTHYROXINE SODIUM [Concomitant]
  15. AMIODARONE [Concomitant]
  16. LOVENOX [Concomitant]
  17. ADVAIR DISKUS 100/50 [Concomitant]

REACTIONS (12)
  - ACUTE MYOCARDIAL INFARCTION [None]
  - ANAEMIA [None]
  - ATRIAL FIBRILLATION [None]
  - CYSTOCELE [None]
  - DEPRESSION [None]
  - EMOTIONAL DISTRESS [None]
  - HYPERLIPIDAEMIA [None]
  - HYPOTHYROIDISM [None]
  - INJURY [None]
  - PAIN [None]
  - QUALITY OF LIFE DECREASED [None]
  - URINARY TRACT INFECTION [None]
